FAERS Safety Report 24689548 (Version 1)
Quarter: 2024Q4

REPORT INFORMATION
  Report Type: Spontaneous
  Country: GB (occurrence: GB)
  Receive Date: 20241203
  Receipt Date: 20241203
  Transmission Date: 20250114
  Serious: Yes (Other)
  Sender: AUROBINDO
  Company Number: GB-MHRA-TPP10022161C10739299YC1732015071886

PATIENT
  Age: 79 Year
  Sex: Female
  Weight: 44 kg

DRUGS (3)
  1. CLARITHROMYCIN [Suspect]
     Active Substance: CLARITHROMYCIN
     Indication: Chronic obstructive pulmonary disease
     Dosage: 500 MILLIGRAM, TWO TIMES A DAY
     Route: 065
     Dates: start: 20241105, end: 20241112
  2. OPTIFLO S [Concomitant]
     Indication: Product used for unknown indication
     Dosage: 50 MILLILITER (BOTTLE)
     Route: 065
     Dates: start: 20231023, end: 20240820
  3. OPTILUBE ACTIVE [Concomitant]
     Indication: Product used for unknown indication
     Dosage: 6 MILLILITER, AS DIRECTED (SYRINGE)
     Route: 065
     Dates: start: 20240820

REACTIONS (1)
  - Muscular weakness [Recovered/Resolved]

NARRATIVE: CASE EVENT DATE: 20241114
